FAERS Safety Report 4629185-9 (Version None)
Quarter: 2005Q2

REPORT INFORMATION
  Report Type: 
  Country: None (occurrence: None)
  Receive Date: 20050407
  Receipt Date: 20050328
  Transmission Date: 20051028
  Serious: Yes (Other)
  Sender: FDA-Public Use
  Company Number: FR-SANOFI-SYNTHELABO-A02200500937

PATIENT
  Age: 23 Year
  Sex: Female

DRUGS (1)
  1. STILNOX [Suspect]
     Indication: DRUG USE FOR UNKNOWN INDICATION
     Dosage: UNK
     Route: 048

REACTIONS (4)
  - DRUG SCREEN POSITIVE [None]
  - GLOBAL AMNESIA [None]
  - SEDATION [None]
  - SEXUAL ASSAULT VICTIM [None]
